FAERS Safety Report 25521140 (Version 1)
Quarter: 2025Q3

REPORT INFORMATION
  Report Type: Spontaneous
  Country: US (occurrence: US)
  Receive Date: 20250705
  Receipt Date: 20250705
  Transmission Date: 20251021
  Serious: Yes (Hospitalization)
  Sender: AUROBINDO
  Company Number: US-MLMSERVICE-20250613-PI543214-00108-1

PATIENT
  Age: 57 Year
  Sex: Female

DRUGS (15)
  1. CLOZAPINE [Interacting]
     Active Substance: CLOZAPINE
     Indication: Schizophrenia
     Dosage: 325 MILLIGRAM, ONCE A DAY (NIGHTLY; DISINTEGRATING TABLET)
     Route: 048
  2. CLOZAPINE [Interacting]
     Active Substance: CLOZAPINE
     Dosage: 200 MILLIGRAM, ONCE A DAY (NIGHTLY)
     Route: 065
  3. CLOZAPINE [Interacting]
     Active Substance: CLOZAPINE
     Route: 065
  4. CIPROFLOXACIN [Interacting]
     Active Substance: CIPROFLOXACIN
     Indication: Cellulitis
     Route: 065
  5. CIPROFLOXACIN [Interacting]
     Active Substance: CIPROFLOXACIN
     Indication: Enterobacter infection
     Dosage: 500 MILLIGRAM, TWO TIMES A DAY (UP TO 7 DAYS)
     Route: 065
  6. ALBUTEROL SULFATE [Concomitant]
     Active Substance: ALBUTEROL SULFATE
     Indication: Chronic obstructive pulmonary disease
  7. DIVALPROEX SODIUM [Concomitant]
     Active Substance: DIVALPROEX SODIUM
     Indication: Seizure
     Dosage: 1750 MILLIGRAM, ONCE A DAY (EXTENDED RELEASE, AT NIGHT)
     Route: 048
  8. BETAMETHASONE DIPROPIONATE [Concomitant]
     Active Substance: BETAMETHASONE DIPROPIONATE
     Indication: Dermatosis
     Route: 065
  9. CLOBETASOL [Concomitant]
     Active Substance: CLOBETASOL
     Indication: Dermatosis
     Route: 065
  10. LATANOPROST [Concomitant]
     Active Substance: LATANOPROST
     Indication: Glaucoma
     Dosage: 1 GTT DROPS, ONCE A DAY(PLACE 1 DROP INTO BOTH EYES NIGHTLY)
     Route: 065
  11. CHOLECALCIFEROL [Concomitant]
     Active Substance: CHOLECALCIFEROL
     Indication: Vitamin D deficiency
     Dosage: 1000 INTERNATIONAL UNIT, ONCE A DAY
     Route: 048
  12. METHYL SALICYLATE [Concomitant]
     Active Substance: METHYL SALICYLATE
     Indication: Analgesic therapy
     Route: 065
  13. TACROLIMUS [Concomitant]
     Active Substance: TACROLIMUS
     Indication: Dermatitis contact
     Route: 065
  14. CEPHALEXIN [Concomitant]
     Active Substance: CEPHALEXIN
     Indication: Cellulitis
  15. CEPHALEXIN [Concomitant]
     Active Substance: CEPHALEXIN
     Indication: Enterobacter infection

REACTIONS (5)
  - Sedation [Recovering/Resolving]
  - Somnolence [Recovering/Resolving]
  - Fatigue [Unknown]
  - Antipsychotic drug level increased [Recovering/Resolving]
  - Drug interaction [Recovering/Resolving]
